FAERS Safety Report 4431419-0 (Version None)
Quarter: 2004Q3

REPORT INFORMATION
  Report Type: 
  Country: None (occurrence: None)
  Receive Date: 20040818
  Receipt Date: 20040804
  Transmission Date: 20050211
  Serious: Yes (Hospitalization)
  Sender: FDA-Public Use
  Company Number: USA031152265

PATIENT
  Age: 83 Year
  Sex: Female

DRUGS (3)
  1. FORTEO [Suspect]
     Indication: OSTEOPOROSIS
     Dosage: 20 UG/DAILY
     Dates: start: 20031027
  2. LISINOPRIL [Concomitant]
  3. PRAVACHOL [Concomitant]

REACTIONS (8)
  - BUTTOCK PAIN [None]
  - CATARACT OPERATION [None]
  - INTERVERTEBRAL DISC OPERATION [None]
  - KNEE ARTHROPLASTY [None]
  - MYALGIA [None]
  - PAIN IN EXTREMITY [None]
  - PHARMACEUTICAL PRODUCT COMPLAINT [None]
  - SPINAL LAMINECTOMY [None]
